FAERS Safety Report 20440531 (Version 1)
Quarter: 2022Q1

REPORT INFORMATION
  Report Type: Spontaneous
  Country: None (occurrence: US)
  Receive Date: 20220207
  Receipt Date: 20220207
  Transmission Date: 20220424
  Serious: No
  Sender: FDA-Public Use
  Company Number: US-Intersect Ent, Inc.-2124704

PATIENT
  Age: 60 Year
  Sex: Female

DRUGS (1)
  1. SINUVA [Suspect]
     Active Substance: MOMETASONE FUROATE
     Indication: Nasal polyps
     Route: 006
     Dates: start: 20210910

REACTIONS (4)
  - Nasal crusting [Recovered/Resolved]
  - Tooth abscess [Unknown]
  - Rhinitis [Unknown]
  - Nasal inflammation [Unknown]

NARRATIVE: CASE EVENT DATE: 20211001
